FAERS Safety Report 8270464-4 (Version None)
Quarter: 2012Q2

REPORT INFORMATION
  Report Type: 
  Country: None (occurrence: None)
  Receive Date: 20120405
  Receipt Date: 20120320
  Transmission Date: 20120825
  Serious: Yes (Hospitalization)
  Sender: FDA-Public Use
  Company Number: VAL_00737_2012

PATIENT
  Age: 63 Year
  Sex: Female

DRUGS (4)
  1. CALCIUM CARBONATE [Suspect]
     Indication: HYPOPARATHYROIDISM
     Dosage: 500 MG TID ORAL
     Route: 048
     Dates: start: 20090301
  2. ZOCOR [Concomitant]
  3. AMILORIDE HCL AND HYDROCHLOROTHIAZIDE [Concomitant]
  4. ROCALTROL [Suspect]
     Indication: HYPOPARATHYROIDISM
     Dosage: DF ORAL
     Route: 048
     Dates: start: 20090301, end: 20120216

REACTIONS (2)
  - DRUG INTERACTION [None]
  - HYPERCALCAEMIA [None]
